FAERS Safety Report 8208304-1 (Version None)
Quarter: 2012Q1

REPORT INFORMATION
  Report Type: 
  Country: None (occurrence: None)
  Receive Date: 20120314
  Receipt Date: 20120314
  Transmission Date: 20120608
  Serious: Yes (Hospitalization)
  Sender: FDA-Public Use
  Company Number: PHHO1996GB04451

PATIENT
  Sex: Female

DRUGS (1)
  1. NEORAL [Suspect]
     Route: 048
     Dates: start: 19950506, end: 19960601

REACTIONS (1)
  - PARAESTHESIA [None]
